FAERS Safety Report 8069099-8 (Version None)
Quarter: 2012Q1

REPORT INFORMATION
  Report Type: 
  Country: None (occurrence: None)
  Receive Date: 20120125
  Receipt Date: 20120118
  Transmission Date: 20120608
  Serious: No
  Sender: FDA-Public Use
  Company Number: US-PFIZER INC-2012014680

PATIENT
  Sex: Male
  Weight: 65.76 kg

DRUGS (4)
  1. VIAGRA [Suspect]
     Dosage: 100 MG, AS NEEDED
     Route: 048
  2. CITALOPRAM [Concomitant]
     Indication: AFFECTIVE DISORDER
     Dosage: 20 MG, 1X/DAY
  3. VIAGRA [Suspect]
     Indication: ERECTILE DYSFUNCTION
     Dosage: 50 MG, AS NEEDED
     Route: 048
     Dates: start: 20060101
  4. DOXYCYCLINE [Concomitant]
     Indication: PERIODONTAL DISEASE
     Dosage: 100 MG, 2X/DAY

REACTIONS (1)
  - DRUG INEFFECTIVE [None]
